FAERS Safety Report 5306426-6 (Version None)
Quarter: 2007Q2

REPORT INFORMATION
  Report Type: 
  Country: None (occurrence: None)
  Receive Date: 20070417
  Receipt Date: 20070403
  Transmission Date: 20071010
  Serious: Yes (Other)
  Sender: FDA-Public Use
  Company Number: B0466058A

PATIENT
  Sex: 0

DRUGS (12)
  1. TRIMETHOPRIM + SULFAMETHOXAZOLE [Suspect]
  2. AUGMENTIN '250' [Suspect]
  3. IFOSFAMIDE [Suspect]
  4. EPIRUBICIN [Suspect]
  5. ETOPOSIDE [Suspect]
  6. IDARUBICIN HCL [Suspect]
  7. DEXAMETHASONE TAB [Suspect]
  8. ALKERAN [Suspect]
     Indication: MULTIPLE MYELOMA
  9. FLUDARABINE PHOSPHATE [Suspect]
  10. METHOTREXATE [Suspect]
     Indication: PROPHYLAXIS AGAINST TRANSPLANT REJECTION
  11. CYCLOSPORINE [Suspect]
     Indication: PROPHYLAXIS AGAINST TRANSPLANT REJECTION
     Dosage: 3 MG/KG
  12. LEVOFLOXACIN [Suspect]

REACTIONS (1)
  - TOXIC EPIDERMAL NECROLYSIS [None]
